FAERS Safety Report 6348687-0 (Version None)
Quarter: 2009Q3

REPORT INFORMATION
  Report Type: 
  Country: None (occurrence: None)
  Receive Date: 20090911
  Receipt Date: 20090831
  Transmission Date: 20100115
  Serious: Yes (Other)
  Sender: FDA-Public Use
  Company Number: US-PFIZER INC-2009192382

PATIENT
  Sex: Female
  Weight: 73 kg

DRUGS (14)
  1. PROVERA [Suspect]
     Indication: HORMONE REPLACEMENT THERAPY
     Dosage: UNK
     Route: 048
     Dates: end: 19811201
  2. PROVERA [Suspect]
     Dosage: 10 MG, UNK
     Dates: start: 19851101, end: 19870301
  3. PROVERA [Suspect]
     Dosage: 10 MG, UNK
     Dates: start: 19881001
  4. PROVERA [Suspect]
     Dosage: 5 MG, UNK
     Dates: start: 19880101
  5. PROVERA [Suspect]
     Dosage: 2.5 MG, UNK
     Dates: start: 19880601, end: 19990201
  6. NORLUTATE [Suspect]
     Indication: HORMONE REPLACEMENT THERAPY
     Dosage: 5 MG, UNK
     Dates: end: 19811201
  7. NORLUTATE [Suspect]
     Dosage: 5 MG, UNK
     Dates: start: 19830101, end: 19870101
  8. PREMARIN [Suspect]
     Indication: HORMONE REPLACEMENT THERAPY
     Dosage: 0.625 MG, UNK
     Dates: start: 19880601
  9. PREMARIN [Suspect]
     Dosage: 0.625MG/5MG
     Dates: start: 19980701, end: 19990501
  10. OVRAL [Suspect]
     Indication: HORMONE REPLACEMENT THERAPY
     Dosage: UNK
     Dates: end: 19811201
  11. PREMPRO [Suspect]
     Indication: HORMONE REPLACEMENT THERAPY
     Dosage: 0.625MG/2.5MG
     Dates: start: 19970101, end: 19990501
  12. PREMPRO [Suspect]
     Dosage: 0.625MG/5MG
     Dates: start: 19980701, end: 19990501
  13. ZANTAC [Concomitant]
     Indication: DYSPEPSIA
     Dosage: UNK
     Dates: start: 19950101
  14. RHINOCORT [Concomitant]
     Indication: ACUTE SINUSITIS
     Dosage: UNK
     Dates: start: 19950101

REACTIONS (1)
  - BREAST CANCER FEMALE [None]
